FAERS Safety Report 9109037 (Version 1)
Quarter: 2013Q1

REPORT INFORMATION
  Report Type: Spontaneous
  Country: US (occurrence: US)
  Receive Date: 20130222
  Receipt Date: 20130222
  Transmission Date: 20140127
  Serious: Yes (Death, Hospitalization)
  Sender: FDA-Public Use
  Company Number: US-ROCHE-1092273

PATIENT
  Sex: Female

DRUGS (5)
  1. TARCEVA [Suspect]
     Indication: HEPATIC CANCER
     Route: 065
     Dates: start: 20100322
  2. AVASTIN [Suspect]
     Indication: HEPATIC CANCER
     Route: 065
     Dates: start: 20100322
  3. METFORMIN [Concomitant]
     Route: 048
  4. OMEPRAZOLE [Concomitant]
     Route: 048
  5. PRAVASTATIN [Concomitant]
     Route: 065

REACTIONS (10)
  - Death [Fatal]
  - Renal failure acute [Unknown]
  - Asthenia [Unknown]
  - Hyponatraemia [Unknown]
  - Hypotension [Recovered/Resolved]
  - Hepatic cirrhosis [Unknown]
  - Disease progression [Unknown]
  - Hypoxia [Unknown]
  - Spinal column stenosis [Unknown]
  - Nerve compression [Unknown]
